FAERS Safety Report 5941178-8 (Version None)
Quarter: 2008Q4

REPORT INFORMATION
  Report Type: 
  Country: None (occurrence: None)
  Receive Date: 20081104
  Receipt Date: 20081023
  Transmission Date: 20090506
  Serious: Yes (Hospitalization)
  Sender: FDA-Public Use
  Company Number: JP-PFIZER INC-2008079279

PATIENT
  Sex: Female

DRUGS (3)
  1. TOLTERODINE TARTRATE [Suspect]
     Indication: HYPERTONIC BLADDER
     Route: 048
     Dates: start: 20070619, end: 20070720
  2. FLOMOX [Suspect]
     Indication: CYSTITIS
     Dosage: DAILY DOSE:300MG
     Dates: start: 20070619
  3. CRAVIT [Suspect]
     Indication: CYSTITIS
     Dosage: DAILY DOSE:300MG
     Dates: start: 20070702

REACTIONS (1)
  - PYELONEPHRITIS ACUTE [None]
